FAERS Safety Report 8590483-8 (Version None)
Quarter: 2012Q3

REPORT INFORMATION
  Report Type: 
  Country: None (occurrence: None)
  Receive Date: 20120813
  Receipt Date: 20120807
  Transmission Date: 20120928
  Serious: Yes (Other)
  Sender: FDA-Public Use
  Company Number: PHHY2012NL068085

PATIENT
  Sex: Male

DRUGS (1)
  1. TOBI [Suspect]
     Dosage: UNK UKN, ACCORDING TO A 28 DAY SCHEDULE

REACTIONS (5)
  - MALAISE [None]
  - GAIT DISTURBANCE [None]
  - CARDIAC DISORDER [None]
  - COAGULOPATHY [None]
  - DEVICE ISSUE [None]
